FAERS Safety Report 9954649 (Version 2)
Quarter: 2014Q1

REPORT INFORMATION
  Report Type: Report from Study
  Country: US (occurrence: US)
  Receive Date: 20140304
  Receipt Date: 20140304
  Transmission Date: 20141002
  Serious: No
  Sender: FDA-Public Use
  Company Number: US-ABBVIE-13P-163-1059938-00

PATIENT
  Age: 66 Year
  Sex: Male

DRUGS (6)
  1. INSULIN [Concomitant]
     Indication: BLOOD GLUCOSE ABNORMAL
     Dosage: TOOK 4 UNITS
  2. METFORMIN [Concomitant]
     Indication: PRODUCT USED FOR UNKNOWN INDICATION
  3. DIASTOLIC [Concomitant]
     Indication: HYPERTENSION
  4. AMLODIPINE [Concomitant]
     Indication: PRODUCT USED FOR UNKNOWN INDICATION
  5. FUROSEMIDE [Concomitant]
     Indication: PRODUCT USED FOR UNKNOWN INDICATION
  6. HUMIRA [Suspect]
     Indication: RHEUMATOID ARTHRITIS
     Dates: start: 20130221, end: 20130221

REACTIONS (3)
  - Blood glucose abnormal [Not Recovered/Not Resolved]
  - Rash erythematous [Recovered/Resolved]
  - Rheumatoid arthritis [Not Recovered/Not Resolved]
